FAERS Safety Report 8173524-1 (Version None)
Quarter: 2012Q1

REPORT INFORMATION
  Report Type: 
  Country: None (occurrence: None)
  Receive Date: 20120223
  Receipt Date: 20110816
  Transmission Date: 20120608
  Serious: Yes (Other)
  Sender: FDA-Public Use
  Company Number: GB-023531

PATIENT
  Age: 4 Year
  Sex: Male

DRUGS (6)
  1. CYCLOPHOSPHAMIDE [Suspect]
     Indication: BONE MARROW CONDITIONING REGIMEN
  2. (ALEMTUZUMAB) [Suspect]
  3. BUSULFAN [Suspect]
     Dosage: TABLET 14 MG/KG
  4. METHOTREXATE [Suspect]
  5. THIOTEPA [Suspect]
     Indication: BONE MARROW CONDITIONING REGIMEN
  6. CYCLOSPORINE [Suspect]
     Indication: PROPHYLAXIS AGAINST GRAFT VERSUS HOST DISEASE

REACTIONS (15)
  - FLUID OVERLOAD [None]
  - PYREXIA [None]
  - HYPOXIA [None]
  - PULMONARY VENO-OCCLUSIVE DISEASE [None]
  - HEPATOMEGALY [None]
  - WEIGHT INCREASED [None]
  - TACHYPNOEA [None]
  - ASCITES [None]
  - JAUNDICE [None]
  - MALAISE [None]
  - MUCOSAL INFLAMMATION [None]
  - REFRACTORINESS TO PLATELET TRANSFUSION [None]
  - PLEURAL EFFUSION [None]
  - NEUTROPENIC SEPSIS [None]
  - HAEMATEMESIS [None]
